FAERS Safety Report 18252390 (Version 1)
Quarter: 2020Q3

REPORT INFORMATION
  Report Type: Spontaneous
  Country: US (occurrence: US)
  Receive Date: 20200910
  Receipt Date: 20200910
  Transmission Date: 20201103
  Serious: No
  Sender: FDA-Public Use
  Company Number: US-FARMAPROD-202006-0913

PATIENT
  Sex: Male

DRUGS (17)
  1. CENTRUM SILVER .4 [Concomitant]
     Dosage: 300?250 MG
  2. PREDNISOLONE. [Concomitant]
     Active Substance: PREDNISOLONE
     Dosage: 15 MG/5 ML
  3. DORZOLAMIDE/TIMOLOL [Concomitant]
     Active Substance: DORZOLAMIDE\TIMOLOL
  4. COMBIGAN [Concomitant]
     Active Substance: BRIMONIDINE TARTRATE\TIMOLOL MALEATE
     Dosage: 0.2?0.5%
  5. LISINOPRIL. [Concomitant]
     Active Substance: LISINOPRIL
  6. OXERVATE [Suspect]
     Active Substance: CENEGERMIN-BKBJ
     Indication: NEUROTROPHIC KERATOPATHY
     Route: 047
     Dates: start: 20200624
  7. WARFARIN SODIUM. [Concomitant]
     Active Substance: WARFARIN SODIUM
  8. METOPROLOL SUCCINATE. [Concomitant]
     Active Substance: METOPROLOL SUCCINATE
  9. AUGMENTIN [Concomitant]
     Active Substance: AMOXICILLIN\CLAVULANATE POTASSIUM
     Dosage: 875?125 MG
  10. VITAMINE C [Concomitant]
     Active Substance: ASCORBIC ACID
  11. RHOPRESSA [Concomitant]
     Active Substance: NETARSUDIL MESYLATE
  12. ERYTHROMYCIN. [Concomitant]
     Active Substance: ERYTHROMYCIN
  13. SERTRALINE HCL [Concomitant]
     Active Substance: SERTRALINE HYDROCHLORIDE
  14. VALACYCLOVIR [Concomitant]
     Active Substance: VALACYCLOVIR HYDROCHLORIDE
  15. CILOSTAZOL. [Concomitant]
     Active Substance: CILOSTAZOL
  16. ASPIRINE [Concomitant]
     Active Substance: ASPIRIN
  17. ATORVASTATIN CALCIUM. [Concomitant]
     Active Substance: ATORVASTATIN CALCIUM

REACTIONS (1)
  - Product administration error [Unknown]
